FAERS Safety Report 20369167 (Version 1)
Quarter: 2022Q1

REPORT INFORMATION
  Report Type: Spontaneous
  Country: US (occurrence: None)
  Receive Date: 20220121
  Receipt Date: 20220121
  Transmission Date: 20220424
  Serious: No
  Sender: FDA-Public Use
  Company Number: None

PATIENT

DRUGS (1)
  1. SOTROVIMAB [Suspect]
     Active Substance: SOTROVIMAB
     Dates: start: 20220118, end: 20220118

REACTIONS (7)
  - Chills [None]
  - Vomiting [None]
  - Nausea [None]
  - Dyspnoea [None]
  - Vomiting [None]
  - Regurgitation [None]
  - Condition aggravated [None]

NARRATIVE: CASE EVENT DATE: 20220118
